FAERS Safety Report 20822272 (Version 1)
Quarter: 2022Q2

REPORT INFORMATION
  Report Type: Spontaneous
  Country: US (occurrence: US)
  Receive Date: 20220512
  Receipt Date: 20220512
  Transmission Date: 20220721
  Serious: No
  Sender: FDA-Public Use
  Company Number: US-PFIZER INC-202200326625

PATIENT
  Age: 12 Year
  Sex: Female

DRUGS (1)
  1. SIROLIMUS [Suspect]
     Active Substance: SIROLIMUS
     Indication: Vascular malformation
     Dosage: UNK

REACTIONS (4)
  - Anaemia [Unknown]
  - Hyperlipidaemia [Unknown]
  - Off label use [Unknown]
  - Off label use [Unknown]
